FAERS Safety Report 16631713 (Version 1)
Quarter: 2019Q3

REPORT INFORMATION
  Report Type: Spontaneous
  Country: US (occurrence: US)
  Receive Date: 20190725
  Receipt Date: 20190725
  Transmission Date: 20191004
  Serious: Yes (Hospitalization)
  Sender: FDA-Public Use
  Company Number: US-PFIZER INC-2019315927

PATIENT
  Age: 72 Year
  Sex: Female

DRUGS (1)
  1. XALKORI [Suspect]
     Active Substance: CRIZOTINIB
     Indication: LUNG CANCER METASTATIC
     Dosage: 250 MG, UNK

REACTIONS (5)
  - Fatigue [Unknown]
  - Arthralgia [Unknown]
  - Balance disorder [Unknown]
  - Neoplasm progression [Unknown]
  - Essential hypertension [Unknown]

NARRATIVE: CASE EVENT DATE: 20190718
